FAERS Safety Report 14800565 (Version 3)
Quarter: 2018Q2

REPORT INFORMATION
  Report Type: Report from Study
  Country: IT (occurrence: IT)
  Receive Date: 20180424
  Receipt Date: 20180618
  Transmission Date: 20180711
  Serious: Yes (Hospitalization)
  Sender: FDA-Public Use
  Company Number: IT-ALLERGAN-1822700US

PATIENT
  Age: 23 Year
  Sex: Male

DRUGS (2)
  1. CITALOPRAM HYDROBROMIDE UNK [Suspect]
     Active Substance: CITALOPRAM HYDROBROMIDE
     Indication: DRUG ABUSE
     Dosage: 15 GTT, SINGLE (IN TOTAL)
     Route: 048
     Dates: start: 20170207, end: 20170207
  2. ALPRAZOLAM. [Suspect]
     Active Substance: ALPRAZOLAM
     Indication: DRUG ABUSE
     Dosage: 20 ML, SINGLE (IN TOTAL)
     Route: 048
     Dates: start: 20170207, end: 20170207

REACTIONS (2)
  - Drug abuse [Unknown]
  - Sopor [Not Recovered/Not Resolved]

NARRATIVE: CASE EVENT DATE: 20170207
